FAERS Safety Report 8785561 (Version 2)
Quarter: 2012Q4

REPORT INFORMATION
  Report Type: 
  Country: US (occurrence: US)
  Receive Date: 20120914
  Receipt Date: 20121003
  Transmission Date: 20130627
  Serious: No
  Sender: FDA-Public Use
  Company Number: US-PFIZER INC-2012227221

PATIENT
  Age: 37 Year
  Sex: Female
  Weight: 89.8 kg

DRUGS (5)
  1. SERTRALINE HCL [Suspect]
     Indication: DEPRESSION
     Dosage: 50 mg, 1x/day for one week
     Route: 048
     Dates: start: 201208, end: 2012
  2. SERTRALINE HCL [Suspect]
     Dosage: 100 mg, 1x/day
     Route: 048
     Dates: start: 2012
  3. SINGULAIR [Suspect]
     Indication: SEASONAL ALLERGY
     Dosage: 10 mg, 1x/day
     Route: 048
     Dates: start: 201208
  4. SINGULAIR [Suspect]
     Indication: FOOD ALLERGY
  5. VITAMIN D [Concomitant]
     Indication: VITAMIN D DECREASED
     Dosage: 50000 IU, 1x/day
     Route: 048

REACTIONS (4)
  - Drug ineffective [Unknown]
  - Nausea [Recovering/Resolving]
  - Diarrhoea [Recovering/Resolving]
  - Abdominal pain upper [Not Recovered/Not Resolved]
